FAERS Safety Report 5589309-6 (Version None)
Quarter: 2008Q1

REPORT INFORMATION
  Report Type: 
  Country: None (occurrence: None)
  Receive Date: 20080109
  Receipt Date: 20080102
  Transmission Date: 20080703
  Serious: Yes (Other)
  Sender: FDA-Public Use
  Company Number: 130-20785-08010228

PATIENT
  Age: 71 Year
  Sex: Male

DRUGS (5)
  1. THALOMID [Suspect]
     Indication: MULTIPLE MYELOMA
     Dosage: 100 MG, DAILY, ORAL
     Route: 048
  2. DEXAMETHASONE TAB [Suspect]
     Indication: MULTIPLE MYELOMA
     Dosage: 40 MG, 4 CONSECUTIVE DAYS EVERY MONTH, ORAL
     Route: 048
  3. CYCLOPHOSPHAMIDE [Suspect]
     Indication: MULTIPLE MYELOMA
     Dosage: 1 MG, DAILY EVERY MONTH, INTRAVENOUS
     Route: 042
  4. ERYTHROPOIETIN (ERYTHROPOIETIN) [Suspect]
     Indication: MULTIPLE MYELOMA
     Dosage: 30,000 U, DAILY EVERY MONTH, SUBCUTANEOUS
     Route: 058
  5. ZOLEDRONIC ACID [Suspect]
     Indication: MULTIPLE MYELOMA
     Dosage: 4 MG, FOR 15 MINUTES PER MONTH, INTRAVENOUS
     Route: 042

REACTIONS (4)
  - ACTINOMYCOSIS [None]
  - OSTEOMYELITIS BACTERIAL [None]
  - OSTEONECROSIS [None]
  - TOOTH EXTRACTION [None]
